FAERS Safety Report 9665976 (Version 3)
Quarter: 2014Q3

REPORT INFORMATION
  Report Type: Spontaneous
  Country: US (occurrence: None)
  Receive Date: 20131031
  Receipt Date: 20140903
  Transmission Date: 20150326
  Serious: Yes (Hospitalization)
  Sender: FDA-Public Use
  Company Number: 2013US002756

PATIENT
  Age: 49 Year
  Sex: Female
  Weight: 51 kg

DRUGS (17)
  1. LOPERAMIDE (LOPERAMIDE HYDROCHLORIDE) [Concomitant]
  2. HYDROCHLOROTHIAZIDE. [Concomitant]
     Active Substance: HYDROCHLOROTHIAZIDE
  3. METHADONE [Concomitant]
     Active Substance: METHADONE HYDROCHLORIDE
  4. NORMAL SALINE FLUSH (SODIUM CHLORIDE) INJECTION [Concomitant]
  5. CEFEPIME INFUSION [Concomitant]
  6. ZESTRIL (LISINOPRIL) [Concomitant]
  7. GLUCOPHAGE (METFORMIN HYDROCHLORIDE) [Concomitant]
  8. VANTIN (CEFPODOXIME PROXETIL) [Concomitant]
  9. CHLORHEXIDINE [Concomitant]
     Active Substance: CHLORHEXIDINE
  10. FLAGYL (METRONIDAZOLE) [Concomitant]
  11. NEURONTIN [Concomitant]
     Active Substance: GABAPENTIN
  12. HEPARIN LOCK FLUSH (HEPARIN SODIUM) [Concomitant]
  13. VFEND (VORICONAZOLE) TABLET [Concomitant]
  14. KLOR CON (POTASSIUM CHLORIDE) TABLET [Concomitant]
  15. PONATINIB [Suspect]
     Active Substance: PONATINIB
     Indication: B PRECURSOR TYPE ACUTE LEUKAEMIA
     Route: 048
     Dates: start: 20130701
  16. ULTRAM (TRAMADOL HYDROCHLORIDE) [Concomitant]
     Active Substance: TRAMADOL HYDROCHLORIDE
  17. VALTREX (VALACICLOVIR HYDROCHLORIDE) TABLET [Concomitant]

REACTIONS (8)
  - Neutropenia [None]
  - Fatigue [None]
  - Anaemia [None]
  - Epistaxis [None]
  - Rectal haemorrhage [None]
  - Platelet count decreased [None]
  - White blood cell count decreased [None]
  - Pyrexia [None]

NARRATIVE: CASE EVENT DATE: 20131023
